FAERS Safety Report 5789341-3 (Version None)
Quarter: 2008Q2

REPORT INFORMATION
  Report Type: 
  Country: None (occurrence: None)
  Receive Date: 20080623
  Receipt Date: 20080605
  Transmission Date: 20081010
  Serious: Yes (Life-Threatening, Hospitalization)
  Sender: FDA-Public Use
  Company Number: 85417

PATIENT
  Age: 62 Year
  Sex: Male

DRUGS (3)
  1. IBUPROFEN [Suspect]
     Indication: NECK PAIN
     Dosage: 400MG/ 2/1 DAYS/ORAL
     Route: 048
     Dates: start: 20080417, end: 20080422
  2. ETODOLAC [Suspect]
     Indication: GOUT
     Dosage: 300MG/ 2/1 DAYS/ORAL
     Route: 048
     Dates: start: 20080422
  3. OMEPRAZOLE [Concomitant]

REACTIONS (3)
  - DUODENAL ULCER HAEMORRHAGE [None]
  - LETHARGY [None]
  - MELAENA [None]
